FAERS Safety Report 8150617-6 (Version None)
Quarter: 2012Q1

REPORT INFORMATION
  Report Type: 
  Country: None (occurrence: None)
  Receive Date: 20120220
  Receipt Date: 20120213
  Transmission Date: 20120608
  Serious: Yes (Other)
  Sender: FDA-Public Use
  Company Number: PHHY2012ES012887

PATIENT
  Sex: Male

DRUGS (2)
  1. EXJADE [Suspect]
     Dosage: 7 MG/KG, DAILY
  2. EXJADE [Suspect]
     Dosage: 20 MG/KG, DAILY

REACTIONS (3)
  - BLINDNESS [None]
  - HEADACHE [None]
  - OCULAR DISCOMFORT [None]
